FAERS Safety Report 16375416 (Version 13)
Quarter: 2021Q2

REPORT INFORMATION
  Report Type: Spontaneous
  Country: JP (occurrence: JP)
  Receive Date: 20190531
  Receipt Date: 20210531
  Transmission Date: 20210716
  Serious: Yes (Hospitalization)
  Sender: FDA-Public Use
  Company Number: JP-AMGEN-JPNSP2019083717

PATIENT
  Age: 73 Year
  Sex: Female
  Weight: 64.8 kg

DRUGS (39)
  1. PARSABIV [Suspect]
     Active Substance: ETELCALCETIDE HYDROCHLORIDE
     Indication: HYPERPARATHYROIDISM SECONDARY
     Dosage: 2.5 MILLIGRAM, 3 TIMES/WK
     Route: 010
     Dates: start: 20180911, end: 20190305
  2. NESP [Concomitant]
     Active Substance: DARBEPOETIN ALFA
     Dosage: 20 MICROGRAM, QWK
     Route: 065
     Dates: start: 20190312, end: 20191107
  3. ROCALTROL [Concomitant]
     Active Substance: CALCITRIOL
     Dosage: 1 MICROGRAM, 3 TIMES/WK
     Route: 042
     Dates: start: 20190326, end: 20190413
  4. ROCALTROL [Concomitant]
     Active Substance: CALCITRIOL
     Dosage: 1 MICROGRAM, 3 TIMES/WK
     Route: 042
     Dates: start: 20200714, end: 20200808
  5. DARBEPOETIN ALFA RECOMBINANT [Concomitant]
     Active Substance: DARBEPOETIN ALFA
     Dosage: 10 MICROGRAM, QWK
     Route: 065
     Dates: start: 20210413
  6. ROCALTROL [Concomitant]
     Active Substance: CALCITRIOL
     Dosage: 0.5 MICROGRAM, 3 TIMES/WK
     Route: 042
     Dates: start: 20200111, end: 20200314
  7. ROCALTROL [Concomitant]
     Active Substance: CALCITRIOL
     Dosage: 1 MICROGRAM, 2 TIMES/WK
     Route: 042
     Dates: start: 20210316
  8. DARBEPOETIN ALFA RECOMBINANT [Concomitant]
     Active Substance: DARBEPOETIN ALFA
     Dosage: 15 MICROGRAM, QWK
     Route: 065
     Dates: start: 20200901, end: 20201124
  9. PARSABIV [Suspect]
     Active Substance: ETELCALCETIDE HYDROCHLORIDE
     Dosage: 2.5 MILLIGRAM, 3 TIMES/WK
     Route: 010
     Dates: start: 20190326, end: 20200111
  10. NESP [Concomitant]
     Active Substance: DARBEPOETIN ALFA
     Dosage: 15 MICROGRAM, QWK
     Route: 065
     Dates: end: 20190305
  11. P?TOL [MANNITOL] [Concomitant]
     Active Substance: MANNITOL
     Dosage: 750 MILLIGRAM, QD
     Route: 048
     Dates: end: 20200325
  12. PRECIPITATED CALCIUM CARBONATE [Concomitant]
     Active Substance: CALCIUM CARBONATE
     Dosage: 1500 MILLIGRAM, QD
     Route: 065
     Dates: start: 20190822
  13. ROCALTROL [Concomitant]
     Active Substance: CALCITRIOL
     Dosage: 1.5 MICROGRAM, QWK
     Route: 042
     Dates: start: 20200815, end: 20200912
  14. ROCALTROL [Concomitant]
     Active Substance: CALCITRIOL
     Dosage: 1.5 MICROGRAM, 3 TIMES/WK
     Route: 042
     Dates: start: 20201215, end: 20210313
  15. OXAROL [Concomitant]
     Active Substance: MAXACALCITOL
     Dosage: 5 MICROGRAM
     Route: 042
     Dates: start: 2018, end: 20180619
  16. P?TOL [MANNITOL] [Concomitant]
     Active Substance: MANNITOL
     Dosage: 1500 MILLIGRAM, QD
     Route: 048
     Dates: start: 20200326
  17. DARBEPOETIN ALFA RECOMBINANT [Concomitant]
     Active Substance: DARBEPOETIN ALFA
     Dosage: 20 MICROGRAM, QWK
     Route: 065
     Dates: start: 20200519, end: 20200602
  18. DARBEPOETIN ALFA RECOMBINANT [Concomitant]
     Active Substance: DARBEPOETIN ALFA
     Dosage: 10 MICROGRAM, QWK
     Route: 065
     Dates: start: 20201201, end: 20201208
  19. OXAROL [Concomitant]
     Active Substance: MAXACALCITOL
     Dosage: 2.5 MICROGRAM, 3 TIMES/WK
     Route: 042
     Dates: start: 20180626, end: 20181016
  20. FESIN [SACCHARATED IRON OXIDE] [Concomitant]
     Active Substance: IRON SUCROSE
     Dosage: 40 MILLIGRAM, QWK
     Route: 041
     Dates: end: 20200109
  21. ROCALTROL [Concomitant]
     Active Substance: CALCITRIOL
     Dosage: 1.5 MICROGRAM, 2 TIMES/WK
     Route: 042
     Dates: start: 20190416, end: 20190615
  22. ROCALTROL [Concomitant]
     Active Substance: CALCITRIOL
     Dosage: 1 MICROGRAM, 2 TIMES/WK
     Route: 042
     Dates: start: 20200811, end: 20200910
  23. DARBEPOETIN ALFA RECOMBINANT [Concomitant]
     Active Substance: DARBEPOETIN ALFA
     Dosage: 20 MICROGRAM, QWK
     Route: 065
     Dates: start: 20191114, end: 20200414
  24. DARBEPOETIN ALFA RECOMBINANT [Concomitant]
     Active Substance: DARBEPOETIN ALFA
     Dosage: 15 MICROGRAM, QWK
     Route: 065
     Dates: start: 20201215, end: 20210406
  25. ROCALTROL [Concomitant]
     Active Substance: CALCITRIOL
     Dosage: 0.5 MICROGRAM, 3 TIMES/WK
     Route: 042
     Dates: start: 20181018, end: 20181110
  26. ROCALTROL [Concomitant]
     Active Substance: CALCITRIOL
     Dosage: 1.5 MICROGRAM, 2 TIMES/WK
     Route: 042
     Dates: start: 20200917, end: 20201210
  27. DARBEPOETIN ALFA RECOMBINANT [Concomitant]
     Active Substance: DARBEPOETIN ALFA
     Dosage: 30 MICROGRAM, QWK
     Route: 065
     Dates: start: 20200609, end: 20200804
  28. OXAROL [Concomitant]
     Active Substance: MAXACALCITOL
     Dosage: 2.5 MICROGRAM, 3 TIMES/WK
     Route: 042
     Dates: start: 20191114, end: 20200109
  29. ROCALTROL [Concomitant]
     Active Substance: CALCITRIOL
     Dosage: 1 MICROGRAM, 3 TIMES/WK
     Route: 042
     Dates: start: 20181113, end: 20190305
  30. ROCALTROL [Concomitant]
     Active Substance: CALCITRIOL
     Dosage: 1 MICROGRAM, QWK
     Route: 042
     Dates: start: 20190416, end: 20190611
  31. ROCALTROL [Concomitant]
     Active Substance: CALCITRIOL
     Dosage: 1 MICROGRAM, 2 TIMES/WK
     Route: 042
     Dates: start: 20200319, end: 20200711
  32. ROCALTROL [Concomitant]
     Active Substance: CALCITRIOL
     Dosage: 1 MICROGRAM, QWK
     Route: 042
     Dates: start: 20200915, end: 20201208
  33. DARBEPOETIN ALFA RECOMBINANT [Concomitant]
     Active Substance: DARBEPOETIN ALFA
     Dosage: 20 MICROGRAM, QWK
     Route: 065
     Dates: start: 20200811, end: 20200825
  34. PARSABIV [Suspect]
     Active Substance: ETELCALCETIDE HYDROCHLORIDE
     Dosage: 2.5 MILLIGRAM, 3 TIMES/WK
     Route: 010
     Dates: start: 20200519
  35. FESIN [SACCHARATED IRON OXIDE] [Concomitant]
     Active Substance: IRON SUCROSE
     Dosage: 40 MILLIGRAM, QWK
     Route: 041
     Dates: start: 20200416, end: 20200507
  36. ROCALTROL [Concomitant]
     Active Substance: CALCITRIOL
     Dosage: 1.5 MICROGRAM, 3 TIMES/WK
     Route: 042
     Dates: start: 20190618, end: 20191112
  37. ROCALTROL [Concomitant]
     Active Substance: CALCITRIOL
     Dosage: 0.5 MICROGRAM, QWK
     Route: 042
     Dates: start: 20200317, end: 20200707
  38. ROCALTROL [Concomitant]
     Active Substance: CALCITRIOL
     Dosage: 1.5 MICROGRAM, QWK
     Route: 042
     Dates: start: 20210320
  39. DARBEPOETIN ALFA RECOMBINANT [Concomitant]
     Active Substance: DARBEPOETIN ALFA
     Dosage: 15 MICROGRAM, QWK
     Route: 065
     Dates: start: 20200423, end: 20200512

REACTIONS (17)
  - Peripheral arterial occlusive disease [Recovered/Resolved]
  - Urinary tract infection [Recovered/Resolved]
  - Shunt stenosis [Recovered/Resolved]
  - Avulsion fracture [Recovered/Resolved]
  - Pyrexia [Recovered/Resolved]
  - Upper respiratory tract inflammation [Recovered/Resolved]
  - Gastroenteritis viral [Recovered/Resolved]
  - Urinary tract infection [Recovered/Resolved]
  - Urinary tract infection [Recovered/Resolved]
  - Shunt stenosis [Recovered/Resolved]
  - Calculus urinary [Recovered/Resolved]
  - Ankle fracture [Recovered/Resolved]
  - Product prescribing error [Unknown]
  - Ankle fracture [Recovered/Resolved]
  - Pyrexia [Recovered/Resolved]
  - Eczema [Recovered/Resolved]
  - Fracture nonunion [Recovered/Resolved]

NARRATIVE: CASE EVENT DATE: 20181012
